FAERS Safety Report 8225240 (Version 5)
Quarter: 2012Q4

REPORT INFORMATION
  Report Type: 
  Country: US (occurrence: US)
  Receive Date: 20111103
  Receipt Date: 20120914
  Transmission Date: 20130627
  Serious: Yes (Death, Hospitalization)
  Sender: FDA-Public Use
  Company Number: US-MYLANLABS-2011S1022145

PATIENT
  Age: 37 Year
  Sex: Female
  Weight: 119.3 kg

DRUGS (21)
  1. FENTANYL TRANSDERMAL SYSTEM [Suspect]
     Route: 062
     Dates: end: 20091225
  2. LEVOXYL [Concomitant]
  3. PROMETHAZINE [Concomitant]
  4. IBUPROFEN [Concomitant]
  5. FLUOXETINE [Concomitant]
  6. LIDOCAINE [Concomitant]
     Route: 062
  7. VITAMIN D [Concomitant]
  8. CYTOMEL [Concomitant]
  9. NEOMYCIN POLYMIXIN [Concomitant]
     Dosage: HC-ear
  10. OMEPRAZOLE [Concomitant]
  11. SILVER SULFADIAZINE [Concomitant]
  12. NORCO [Concomitant]
     Dosage: 10mg/325mg; 1 - 2 every 4 hours as needed
  13. ZANAFLEX [Concomitant]
  14. VITAMIN B12 [Concomitant]
  15. XANAX [Concomitant]
  16. ZOFRAN [Concomitant]
  17. REGLAN [Concomitant]
     Dosage: 10 - 20 mg QD
  18. PROVIGIL [Concomitant]
  19. AMINO ACIDS [Concomitant]
  20. MULTIVITAMIN [Concomitant]
  21. BIOFREEZE /06755101/ [Concomitant]

REACTIONS (2)
  - Toxicity to various agents [Fatal]
  - Influenza like illness [None]
